APPROVED DRUG PRODUCT: TEGSEDI
Active Ingredient: INOTERSEN SODIUM
Strength: EQ 284MG BASE/1.5ML (EQ 189.3MG BASE/ML)
Dosage Form/Route: SOLUTION;SUBCUTANEOUS
Application: N211172 | Product #001
Applicant: AKCEA THERAPEUTICS INC
Approved: Oct 5, 2018 | RLD: Yes | RS: No | Type: DISCN

PATENTS:
Patent 9399774 | Expires: Apr 29, 2031
Patent 9061044 | Expires: Apr 29, 2031
Patent 8697860 | Expires: Apr 29, 2031